FAERS Safety Report 6741382-5 (Version None)
Quarter: 2010Q2

REPORT INFORMATION
  Report Type: 
  Country: None (occurrence: None)
  Receive Date: 20100526
  Receipt Date: 20100514
  Transmission Date: 20101027
  Serious: Yes (Other)
  Sender: FDA-Public Use
  Company Number: GB-BAYER-201025938GPV

PATIENT
  Age: 32 Year
  Sex: Female

DRUGS (7)
  1. SALBUTAMOL [Suspect]
     Indication: WHEEZING
     Dosage: STARTED AT 14 WEEKS GESTATION
  2. ASPIRIN [Suspect]
     Indication: DRUG USE FOR UNKNOWN INDICATION
  3. FRUSEMIDE [Suspect]
     Indication: DRUG USE FOR UNKNOWN INDICATION
     Route: 042
  4. DIGOXIN [Suspect]
     Indication: TACHYCARDIA
  5. ENOXAPARIN SODIUM [Suspect]
     Indication: DRUG USE FOR UNKNOWN INDICATION
  6. METOPROLOL [Suspect]
     Indication: DRUG USE FOR UNKNOWN INDICATION
     Dosage: TOTAL DAILY DOSE: 25 MG
     Route: 065
  7. FLUIDS [Concomitant]
     Route: 042

REACTIONS (9)
  - GENERAL PHYSICAL HEALTH DETERIORATION [None]
  - HELLP SYNDROME [None]
  - INTRA-UTERINE DEATH [None]
  - LEFT ATRIAL DILATATION [None]
  - MITRAL VALVE INCOMPETENCE [None]
  - MITRAL VALVE STENOSIS [None]
  - PRE-ECLAMPSIA [None]
  - PULMONARY HYPERTENSION [None]
  - PULMONARY OEDEMA [None]
